FAERS Safety Report 9193648 (Version 5)
Quarter: 2014Q1

REPORT INFORMATION
  Report Type: Spontaneous
  Country: US (occurrence: US)
  Receive Date: 20130327
  Receipt Date: 20140203
  Transmission Date: 20141002
  Serious: Yes (Other)
  Sender: FDA-Public Use
  Company Number: US-JNJFOC-20130313780

PATIENT
  Age: 58 Year
  Sex: Female
  Weight: 74.84 kg

DRUGS (8)
  1. STELARA [Suspect]
     Indication: PSORIASIS
     Route: 058
     Dates: start: 20100414, end: 20130213
  2. CYMBALTA [Concomitant]
     Route: 048
  3. ATIVAN [Concomitant]
     Route: 048
  4. TRIAVIL [Concomitant]
     Route: 048
  5. TRAZODONE [Concomitant]
     Route: 048
  6. TRIAMCINOLONE [Concomitant]
     Route: 061
     Dates: start: 20100414, end: 20110525
  7. OLUX-E [Concomitant]
     Route: 061
     Dates: start: 20100414, end: 20110525
  8. METHOTREXATE [Concomitant]
     Route: 048
     Dates: start: 20100617, end: 20101007

REACTIONS (1)
  - B-cell lymphoma [Recovered/Resolved]
